FAERS Safety Report 15339810 (Version 2)
Quarter: 2018Q3

REPORT INFORMATION
  Report Type: Report from Study
  Country: DE (occurrence: DE)
  Receive Date: 20180831
  Receipt Date: 20180906
  Transmission Date: 20181010
  Serious: Yes (Death)
  Sender: FDA-Public Use
  Company Number: PHHY2018DE064505

PATIENT
  Sex: Female
  Weight: 74 kg

DRUGS (3)
  1. PAZOPANIB [Suspect]
     Active Substance: PAZOPANIB
     Dosage: 600 MG, UNK
     Route: 065
  2. PAZOPANIB [Suspect]
     Active Substance: PAZOPANIB
     Indication: RENAL CELL CARCINOMA
     Dosage: 800 MG, QD
     Route: 048
     Dates: start: 20160707, end: 20171214
  3. PAZOPANIB [Suspect]
     Active Substance: PAZOPANIB
     Dosage: 400 MG, UNK
     Route: 065
     Dates: start: 20160722, end: 20160826

REACTIONS (8)
  - Metastases to spine [Fatal]
  - Malignant neoplasm progression [Fatal]
  - Intestinal perforation [Fatal]
  - Renal cell carcinoma [Fatal]
  - Bone pain [Recovered/Resolved with Sequelae]
  - Sepsis [Fatal]
  - Skin discolouration [Recovered/Resolved with Sequelae]
  - Diarrhoea [Recovered/Resolved with Sequelae]

NARRATIVE: CASE EVENT DATE: 20161101
